FAERS Safety Report 9524187 (Version 4)
Quarter: 2020Q3

REPORT INFORMATION
  Report Type: Report from Study
  Country: CA (occurrence: CA)
  Receive Date: 20130916
  Receipt Date: 20200728
  Transmission Date: 20201103
  Serious: Yes (Other)
  Sender: FDA-Public Use
  Company Number: CA-JNJFOC-20130500123

PATIENT
  Age: 29 Year
  Sex: Male
  Weight: 90 kg

DRUGS (9)
  1. SOLU?CORTEF [Concomitant]
     Active Substance: HYDROCORTISONE SODIUM SUCCINATE
     Indication: PREMEDICATION
     Route: 042
     Dates: start: 20130429
  2. REMICADE [Suspect]
     Active Substance: INFLIXIMAB
     Indication: CROHN^S DISEASE
     Dosage: INDUCTION DOSES
     Route: 042
     Dates: start: 200511
  3. REMICADE [Suspect]
     Active Substance: INFLIXIMAB
     Dosage: 2ND DOSE. PATIENT RECEIVED 150 ML OF INFLIXIMAB 400 MG DILUTED IN 250 ML OF SODIUM CHLORIDE (NACL)
     Route: 042
     Dates: start: 20130429, end: 20130429
  4. BENADRYL [Concomitant]
     Active Substance: DIPHENHYDRAMINE HYDROCHLORIDE
     Indication: PREMEDICATION
     Route: 048
     Dates: start: 20130429
  5. REMICADE [Suspect]
     Active Substance: INFLIXIMAB
     Dosage: INDUCTION DOSES
     Route: 042
     Dates: start: 200609, end: 200609
  6. REMICADE [Suspect]
     Active Substance: INFLIXIMAB
     Dosage: DOSING FREQUENCY 0?2?6 WEEKS1ST DOSE. START DATE CONFLICTINGLY REPORTED AS 13?APR?2013
     Route: 042
     Dates: start: 20130416
  7. REMICADE [Suspect]
     Active Substance: INFLIXIMAB
     Route: 042
     Dates: start: 20130401
  8. EPINEPHRINE. [Concomitant]
     Active Substance: EPINEPHRINE
     Indication: PREMEDICATION
     Route: 030
     Dates: start: 20130429
  9. TYLENOL [Concomitant]
     Active Substance: ACETAMINOPHEN
     Indication: PREMEDICATION
     Route: 048
     Dates: start: 20130429

REACTIONS (10)
  - Flushing [Unknown]
  - Infusion related reaction [Unknown]
  - Hyperhidrosis [Recovered/Resolved]
  - Dyspnoea [Recovered/Resolved]
  - Drug ineffective [Unknown]
  - Chest pain [Recovered/Resolved]
  - Blood pressure increased [Recovered/Resolved]
  - Palpitations [Recovered/Resolved]
  - Urticaria [Recovered/Resolved]
  - Tachycardia [Recovered/Resolved]

NARRATIVE: CASE EVENT DATE: 20130417
